FAERS Safety Report 7831012-3 (Version None)
Quarter: 2011Q4

REPORT INFORMATION
  Report Type: 
  Country: None (occurrence: None)
  Receive Date: 20111021
  Receipt Date: 20111014
  Transmission Date: 20120403
  Serious: Yes (Hospitalization, Other)
  Sender: FDA-Public Use
  Company Number: JP-PFIZER INC-2011206516

PATIENT
  Age: 33 Year
  Sex: Male

DRUGS (6)
  1. NABOAL - SLOW RELEASE [Concomitant]
     Indication: PAIN
     Dosage: 37.5 MG, 2X/DAY
     Route: 048
     Dates: end: 20110702
  2. ALCOHOL [Suspect]
  3. PREGABALIN [Suspect]
     Indication: COMPLEX REGIONAL PAIN SYNDROME
     Dosage: 75 MG, 2X/DAY
     Route: 048
     Dates: start: 20110416, end: 20110525
  4. PREGABALIN [Suspect]
     Dosage: 112.5 MG, 2X/DAY
     Route: 048
     Dates: start: 20110526, end: 20110603
  5. GASLON [Concomitant]
     Indication: GASTRITIS PROPHYLAXIS
     Dosage: 2 MG, 2X/DAY
     Route: 048
     Dates: end: 20110702
  6. PREGABALIN [Suspect]
     Dosage: 150 MG, 2X/DAY
     Route: 048
     Dates: start: 20110604

REACTIONS (2)
  - LOSS OF CONSCIOUSNESS [None]
  - SUICIDE ATTEMPT [None]
